FAERS Safety Report 10229873 (Version 1)
Quarter: 2014Q2

REPORT INFORMATION
  Report Type: Spontaneous
  Country: US (occurrence: None)
  Receive Date: 20140609
  Receipt Date: 20140609
  Transmission Date: 20141212
  Serious: Yes (Hospitalization, Other)
  Sender: FDA-Public Use
  Company Number: ADR-2014-00968

PATIENT
  Age: 56 Year
  Sex: Female

DRUGS (11)
  1. LIORESAL INTRATHECAL (BACLOFEN INJECTION) 2000 MCG/ML [Suspect]
     Indication: MUSCLE SPASTICITY
     Dates: start: 20140520
  2. MORPHINE [Suspect]
     Dates: start: 20140520
  3. CYMBALTA [Suspect]
  4. ASA [Suspect]
  5. PATANOL [Suspect]
  6. CLONIDINE [Suspect]
  7. KEPPRA [Suspect]
  8. OMEPRAZOLE [Suspect]
  9. DEPAKOTE [Suspect]
  10. COZAAR [Suspect]
  11. AMLODIPINE [Suspect]

REACTIONS (1)
  - Altered state of consciousness [None]
